FAERS Safety Report 6096405-6 (Version None)
Quarter: 2009Q1

REPORT INFORMATION
  Report Type: 
  Country: None (occurrence: None)
  Receive Date: 20090227
  Receipt Date: 20081230
  Transmission Date: 20090719
  Serious: No
  Sender: FDA-Public Use
  Company Number: A0759721A

PATIENT
  Age: 51 Year
  Sex: Female

DRUGS (8)
  1. LAMICTAL [Suspect]
     Indication: DEPRESSION
     Dosage: 25MG PER DAY
     Route: 048
     Dates: start: 20070101
  2. PAROXETINE HCL [Suspect]
     Indication: DEPRESSION
     Dosage: 10MG PER DAY
     Route: 048
     Dates: start: 20051201, end: 20081214
  3. PAXIL [Suspect]
     Indication: DEPRESSION
     Dosage: 10MG PER DAY
     Route: 048
     Dates: start: 20051201, end: 20081214
  4. BETALOL [Concomitant]
  5. VICODIN [Concomitant]
  6. VITAMIN B COMPLEX CAP [Concomitant]
  7. ALDACTAZIDE [Concomitant]
  8. BETA BLOCKER [Concomitant]

REACTIONS (10)
  - ANXIETY [None]
  - ARRHYTHMIA [None]
  - DIZZINESS [None]
  - EMOTIONAL DISORDER [None]
  - NAUSEA [None]
  - NIGHTMARE [None]
  - PRODUCT QUALITY ISSUE [None]
  - SLEEP DISORDER [None]
  - VISION BLURRED [None]
  - WEIGHT INCREASED [None]
